FAERS Safety Report 5064768-6 (Version None)
Quarter: 2006Q3

REPORT INFORMATION
  Report Type: 
  Country: None (occurrence: None)
  Receive Date: 20060728
  Receipt Date: 20060301
  Transmission Date: 20061208
  Serious: Yes (Other)
  Sender: FDA-Public Use
  Company Number: US-ROCHE-438839

PATIENT
  Age: 18 Year
  Sex: Female
  Weight: 68.9 kg

DRUGS (4)
  1. ACCUTANE [Suspect]
     Route: 048
     Dates: start: 19980223, end: 19980317
  2. ACCUTANE [Suspect]
     Route: 048
     Dates: start: 19980318, end: 19980719
  3. ORTHO TRI-CYCLEN [Concomitant]
  4. NORDETTE-21 [Concomitant]

REACTIONS (21)
  - ACUTE SINUSITIS [None]
  - CELLULITIS [None]
  - CROHN'S DISEASE [None]
  - CYST [None]
  - DEPRESSION [None]
  - DRUG EXPOSURE DURING PREGNANCY [None]
  - DRY SKIN [None]
  - FATIGUE [None]
  - HEADACHE [None]
  - HERPES ZOSTER [None]
  - INFLAMMATORY BOWEL DISEASE [None]
  - IRRITABLE BOWEL SYNDROME [None]
  - LIP DRY [None]
  - LIVER DISORDER [None]
  - MULTIPLE SCLEROSIS [None]
  - PREGNANCY [None]
  - PREMATURE LABOUR [None]
  - PRURITUS [None]
  - ULTRASOUND SCAN VAGINA ABNORMAL [None]
  - VIRAL UPPER RESPIRATORY TRACT INFECTION [None]
  - WEIGHT DECREASED [None]
